FAERS Safety Report 17227839 (Version 1)
Quarter: 2020Q1

REPORT INFORMATION
  Report Type: Spontaneous
  Country: US (occurrence: US)
  Receive Date: 20200103
  Receipt Date: 20200103
  Transmission Date: 20200409
  Serious: No
  Sender: FDA-Public Use
  Company Number: US-AUROBINDO-AUR-APL-2019-065041

PATIENT
  Age: 44 Year
  Sex: Male
  Weight: 82 kg

DRUGS (2)
  1. GUAIFENESINANDDEXTROMETHORPHANHYDROBROMIDEEXTENDED-RELEASETABLET (OTC) [Suspect]
     Active Substance: DEXTROMETHORPHAN HYDROBROMIDE\GUAIFENESIN
     Dosage: 2 DOSAGE FORM, ONCE A DAY
     Route: 065
     Dates: start: 20190930
  2. GUAIFENESINANDDEXTROMETHORPHANHYDROBROMIDEEXTENDED-RELEASETABLET (OTC) [Suspect]
     Active Substance: DEXTROMETHORPHAN HYDROBROMIDE\GUAIFENESIN
     Indication: NASOPHARYNGITIS
     Dosage: 1 DOSAGE FORM, ONCE A DAY
     Route: 065
     Dates: start: 20190930

REACTIONS (2)
  - Dizziness [Unknown]
  - Extra dose administered [Unknown]

NARRATIVE: CASE EVENT DATE: 20190930
